FAERS Safety Report 6676411-0 (Version None)
Quarter: 2010Q2

REPORT INFORMATION
  Report Type: 
  Country: None (occurrence: None)
  Receive Date: 20100412
  Receipt Date: 20100329
  Transmission Date: 20101027
  Serious: Yes (Other)
  Sender: FDA-Public Use
  Company Number: PHEH2006US12310

PATIENT
  Sex: Male

DRUGS (14)
  1. AREDIA [Suspect]
     Indication: MULTIPLE MYELOMA
  2. ZOMETA [Suspect]
     Indication: MULTIPLE MYELOMA
  3. LODINE [Concomitant]
  4. ATACAND [Concomitant]
  5. PATANOL [Concomitant]
  6. PERCOCET [Concomitant]
  7. HYDROCODONE BITARTRATE [Concomitant]
  8. PENICILLIN V [Concomitant]
  9. AUGMENTIN '125' [Concomitant]
  10. VIBRAMYCIN                              /NET/ [Concomitant]
  11. VELCADE [Concomitant]
  12. RADIATION THERAPY [Concomitant]
  13. DOXYCYCLINE [Concomitant]
  14. PERIDEX [Concomitant]

REACTIONS (14)
  - ANXIETY [None]
  - BONE DISORDER [None]
  - DECREASED INTEREST [None]
  - DEFORMITY [None]
  - EMOTIONAL DISTRESS [None]
  - GENERAL PHYSICAL HEALTH DETERIORATION [None]
  - HYPERBARIC OXYGEN THERAPY [None]
  - HYPOPHAGIA [None]
  - JAW OPERATION [None]
  - LIFE EXPECTANCY SHORTENED [None]
  - OSTEOMYELITIS CHRONIC [None]
  - OSTEONECROSIS [None]
  - PAIN [None]
  - TOOTH EXTRACTION [None]
